FAERS Safety Report 5843354-1 (Version None)
Quarter: 2008Q3

REPORT INFORMATION
  Report Type: 
  Country: None (occurrence: None)
  Receive Date: 20080813
  Receipt Date: 20080806
  Transmission Date: 20090109
  Serious: No
  Sender: FDA-Public Use
  Company Number: US-BAYER-200830332NA

PATIENT
  Sex: Male

DRUGS (1)
  1. MAGNEVIST [Suspect]
     Indication: NUCLEAR MAGNETIC RESONANCE IMAGING BRAIN
     Dosage: TOTAL DAILY DOSE: 10 ML  UNIT DOSE: 20 ML
     Route: 042
     Dates: start: 20080806, end: 20080806

REACTIONS (5)
  - CHEST DISCOMFORT [None]
  - EYE IRRITATION [None]
  - EYE SWELLING [None]
  - SNEEZING [None]
  - VISION BLURRED [None]
